FAERS Safety Report 8815844 (Version 1)
Quarter: 2012Q4

REPORT INFORMATION
  Report Type: 
  Country: US (occurrence: US)
  Receive Date: 20120928
  Receipt Date: 20120928
  Transmission Date: 20130627
  Serious: Yes (Other)
  Sender: FDA-Public Use
  Company Number: US-009507513-1209USA010316

PATIENT

DRUGS (1)
  1. FOSAMAX [Suspect]
     Dosage: UNK
     Route: 048
     Dates: start: 20051119, end: 201106

REACTIONS (1)
  - Femur fracture [Unknown]
